FAERS Safety Report 4473929-6 (Version None)
Quarter: 2004Q4

REPORT INFORMATION
  Report Type: 
  Country: None (occurrence: None)
  Receive Date: 20041012
  Receipt Date: 20041012
  Transmission Date: 20050328
  Serious: No
  Sender: FDA-Public Use
  Company Number: None

PATIENT
  Sex: Female
  Weight: 91.6266 kg

DRUGS (2)
  1. PROVIGIL [Suspect]
     Dosage: 100 MG DAILY
     Dates: start: 20010517
  2. PEMOLINE [Suspect]
     Indication: NARCOLEPSY
     Dosage: ONE PO TID
     Route: 048

REACTIONS (1)
  - DRUG INEFFECTIVE [None]
